FAERS Safety Report 4350392-7 (Version None)
Quarter: 2004Q2

REPORT INFORMATION
  Report Type: 
  Country: None (occurrence: None)
  Receive Date: 20040430
  Receipt Date: 20040430
  Transmission Date: 20050107
  Serious: Yes (Other)
  Sender: FDA-Public Use
  Company Number: None

PATIENT
  Sex: Female
  Weight: 52.6173 kg

DRUGS (1)
  1. ZELNORM [Suspect]
     Dosage: TWICE DAILY
     Dates: start: 20040415, end: 20040425

REACTIONS (3)
  - GASTROENTERITIS VIRAL [None]
  - HEADACHE [None]
  - SYNCOPE [None]
